FAERS Safety Report 6163329-5 (Version None)
Quarter: 2009Q2

REPORT INFORMATION
  Report Type: 
  Country: None (occurrence: None)
  Receive Date: 20090420
  Receipt Date: 20090416
  Transmission Date: 20091009
  Serious: Yes (Death, Other)
  Sender: FDA-Public Use
  Company Number: 2007SP013765

PATIENT
  Age: 74 Year
  Sex: Female
  Weight: 48 kg

DRUGS (7)
  1. TEMODAL [Suspect]
     Indication: GLIOBLASTOMA MULTIFORME
     Dosage: 75 MG/M2;QD;PO
     Route: 048
     Dates: start: 20061221, end: 20070126
  2. ALEVIATIN (CON.) [Concomitant]
  3. GASTER D (CON.) [Concomitant]
  4. GHSHA-JINKI-GAN (CON.) [Concomitant]
  5. KYTRIL (CON.) [Concomitant]
  6. NAUZELIN (CON.) [Concomitant]
  7. BAKTAR (CON.) [Concomitant]

REACTIONS (1)
  - LYMPHOCYTE COUNT DECREASED [None]
